FAERS Safety Report 12553706 (Version 4)
Quarter: 2019Q1

REPORT INFORMATION
  Report Type: Spontaneous
  Country: JP (occurrence: JP)
  Receive Date: 20160713
  Receipt Date: 20190205
  Transmission Date: 20190417
  Serious: Yes (Hospitalization)
  Sender: FDA-Public Use
  Company Number: JP-ABBVIE-16P-087-1671361-00

PATIENT
  Age: 75 Year
  Sex: Female
  Weight: 50 kg

DRUGS (3)
  1. VIEKIRAX [Suspect]
     Active Substance: OMBITASVIR\PARITAPREVIR\RITONAVIR
     Indication: CHRONIC HEPATITIS C
     Route: 048
     Dates: start: 20160303, end: 20160525
  2. CIMETIDINE [Concomitant]
     Active Substance: CIMETIDINE
     Indication: GASTRIC ULCER
     Route: 048
     Dates: start: 20160303
  3. FAMOTIDINE. [Concomitant]
     Active Substance: FAMOTIDINE
     Indication: GASTRIC ULCER
     Route: 048
     Dates: start: 20160304

REACTIONS (1)
  - Hepatocellular carcinoma [Recovered/Resolved]

NARRATIVE: CASE EVENT DATE: 20160525
